FAERS Safety Report 8769634 (Version 2)
Quarter: 2012Q4

REPORT INFORMATION
  Report Type: 
  Country: BR (occurrence: BR)
  Receive Date: 20120905
  Receipt Date: 20120907
  Transmission Date: 20130627
  Serious: Yes (Life-Threatening, Hospitalization, Other)
  Sender: FDA-Public Use
  Company Number: BR-JNJFOC-20120901229

PATIENT
  Age: 26 Day
  Sex: Male

DRUGS (2)
  1. PARACETAMOL [Suspect]
     Route: 048
  2. PARACETAMOL [Suspect]
     Indication: PRODUCT USED FOR UNKNOWN INDICATION
     Dosage: total dose of 180 mg/kg
     Route: 048

REACTIONS (4)
  - Metabolic acidosis [Recovering/Resolving]
  - Acute hepatic failure [Recovering/Resolving]
  - Toxicity to various agents [Unknown]
  - Coagulopathy [None]
